FAERS Safety Report 6765722-6 (Version None)
Quarter: 2010Q2

REPORT INFORMATION
  Report Type: 
  Country: None (occurrence: None)
  Receive Date: 20100611
  Receipt Date: 20100601
  Transmission Date: 20101027
  Serious: No
  Sender: FDA-Public Use
  Company Number: US-B.I. PHARMACEUTICALS,INC./RIDGEFIELD-2010-BP-06225BP

PATIENT
  Sex: Female

DRUGS (3)
  1. SPIRIVA [Suspect]
     Indication: CHRONIC OBSTRUCTIVE PULMONARY DISEASE
     Dosage: 18 MCG
     Route: 055
     Dates: start: 20100601
  2. OXYCONTIN [Concomitant]
     Indication: PAIN
     Dates: start: 20000101
  3. MULTIPLE MEDICATIONS [Concomitant]
     Dates: start: 20000101

REACTIONS (2)
  - ANXIETY [None]
  - NERVOUSNESS [None]
